FAERS Safety Report 10600926 (Version 1)
Quarter: 2014Q4

REPORT INFORMATION
  Report Type: Spontaneous
  Country: US (occurrence: None)
  Receive Date: 20141121
  Receipt Date: 20141121
  Transmission Date: 20150529
  Serious: No
  Sender: FDA-Public Use
  Company Number: None

PATIENT
  Age: 54 Year
  Sex: Female

DRUGS (1)
  1. TECFIDERA [Suspect]
     Active Substance: DIMETHYL FUMARATE
     Indication: MULTIPLE SCLEROSIS
     Route: 048
     Dates: start: 20130724

REACTIONS (7)
  - Disease recurrence [None]
  - Hypotension [None]
  - Urinary tract infection [None]
  - Vaginal infection [None]
  - Kidney infection [None]
  - Presyncope [None]
  - Asthenia [None]

NARRATIVE: CASE EVENT DATE: 201409
